FAERS Safety Report 13507614 (Version 1)
Quarter: 2017Q2

REPORT INFORMATION
  Report Type: Spontaneous
  Country: US (occurrence: US)
  Receive Date: 20170502
  Receipt Date: 20170502
  Transmission Date: 20170830
  Serious: Yes (Hospitalization)
  Sender: FDA-Public Use
  Company Number: None

PATIENT
  Age: 69 Year
  Sex: Female

DRUGS (1)
  1. SENSIPAR [Suspect]
     Active Substance: CINACALCET HYDROCHLORIDE
     Indication: HYPERPARATHYROIDISM
     Route: 048
     Dates: start: 20170124

REACTIONS (9)
  - Condition aggravated [None]
  - Confusional state [None]
  - Blood glucose decreased [None]
  - Fall [None]
  - Fatigue [None]
  - Metabolic alkalosis [None]
  - Oedema peripheral [None]
  - Cardiac failure [None]
  - Somnolence [None]

NARRATIVE: CASE EVENT DATE: 20170429
